FAERS Safety Report 6449255-2 (Version None)
Quarter: 2009Q4

REPORT INFORMATION
  Report Type: 
  Country: None (occurrence: None)
  Receive Date: 20091120
  Receipt Date: 20091109
  Transmission Date: 20100525
  Serious: Yes (Disabling, Other)
  Sender: FDA-Public Use
  Company Number: US-PFIZER INC-2007078091

PATIENT
  Sex: Male
  Weight: 104.31 kg

DRUGS (1)
  1. CHANTIX [Suspect]
     Indication: SMOKING CESSATION THERAPY
     Dosage: 1 MG, 2X/DAY
     Dates: start: 20070701, end: 20070901

REACTIONS (5)
  - HYPERSENSITIVITY [None]
  - INSOMNIA [None]
  - MACULAR DEGENERATION [None]
  - VISUAL IMPAIRMENT [None]
  - VOMITING [None]
